FAERS Safety Report 8554292-8 (Version None)
Quarter: 2012Q3

REPORT INFORMATION
  Report Type: 
  Country: None (occurrence: None)
  Receive Date: 20120731
  Receipt Date: 20120710
  Transmission Date: 20120928
  Serious: No
  Sender: FDA-Public Use
  Company Number: US-009507513-2012SP035644

PATIENT

DRUGS (2)
  1. PEG-INTRON [Suspect]
     Indication: HEPATITIS C
     Dosage: 150/0.5 MCG, ONE INJECTION
     Route: 058
     Dates: start: 20120601
  2. REBETOL [Suspect]

REACTIONS (1)
  - NAUSEA [None]
